FAERS Safety Report 6420028-X (Version None)
Quarter: 2009Q4

REPORT INFORMATION
  Report Type: 
  Country: None (occurrence: None)
  Receive Date: 20091029
  Receipt Date: 20090413
  Transmission Date: 20100525
  Serious: No
  Sender: FDA-Public Use
  Company Number: A0774202A

PATIENT
  Age: 53 Year
  Sex: Female
  Weight: 75.9 kg

DRUGS (1)
  1. IMITREX [Suspect]
     Indication: HEADACHE
     Route: 045

REACTIONS (1)
  - DRUG INEFFECTIVE [None]
